FAERS Safety Report 13162916 (Version 1)
Quarter: 2017Q1

REPORT INFORMATION
  Report Type: Spontaneous
  Country: US (occurrence: US)
  Receive Date: 20170130
  Receipt Date: 20170130
  Transmission Date: 20170428
  Serious: No
  Sender: FDA-Public Use
  Company Number: US-PFIZER INC-2017032529

PATIENT
  Age: 75 Year
  Sex: Female
  Weight: 48.73 kg

DRUGS (4)
  1. PROPANOLOL HCL [Suspect]
     Active Substance: PROPRANOLOL HYDROCHLORIDE
     Indication: BLOOD PRESSURE ABNORMAL
  2. VERAPAMIL [Concomitant]
     Active Substance: VERAPAMIL HYDROCHLORIDE
     Indication: CARDIAC DISORDER
     Dosage: 180 MG, 1X/DAY
     Route: 048
  3. DIOVAN [Concomitant]
     Active Substance: VALSARTAN
     Indication: BLOOD PRESSURE ABNORMAL
     Dosage: 40 MG, 1X/DAY
     Route: 048
  4. PROPANOLOL HCL [Suspect]
     Active Substance: PROPRANOLOL HYDROCHLORIDE
     Indication: CARDIAC FIBRILLATION
     Dosage: UNK UNK, 4X/DAY (ONE AND HALF FOUR TIMES A DAY)
     Route: 048

REACTIONS (4)
  - Nausea [Unknown]
  - Malaise [Unknown]
  - Reaction to drug excipients [Unknown]
  - Intentional product misuse [Unknown]
